FAERS Safety Report 15351154 (Version 1)
Quarter: 2018Q3

REPORT INFORMATION
  Report Type: Spontaneous
  Country: US (occurrence: US)
  Receive Date: 20180905
  Receipt Date: 20180905
  Transmission Date: 20181010
  Serious: No
  Sender: FDA-Public Use
  Company Number: US-B.I. PHARMACEUTICALS,INC./RIDGEFIELD-2018-BI-043647

PATIENT
  Sex: Female

DRUGS (1)
  1. MOBIC [Suspect]
     Active Substance: MELOXICAM
     Indication: PAIN
     Dosage: STRENGTH: 7.5 MG; ADMINISTRATION CORRECT? NR(NOT REPORTED); ACTION TAKEN: DOSE NOT CHANGED
     Route: 065

REACTIONS (1)
  - Drug effect variable [Unknown]
